FAERS Safety Report 11814157 (Version 7)
Quarter: 2017Q1

REPORT INFORMATION
  Report Type: Report from Study
  Country: FR (occurrence: FR)
  Receive Date: 20151209
  Receipt Date: 20170222
  Transmission Date: 20170428
  Serious: Yes (Death, Life-Threatening, Hospitalization, Other)
  Sender: FDA-Public Use
  Company Number: FR-009507513-1512FRA003281

PATIENT
  Age: 73 Year
  Sex: Male
  Weight: 60 kg

DRUGS (1)
  1. KEYTRUDA [Suspect]
     Active Substance: PEMBROLIZUMAB
     Indication: MALIGNANT MELANOMA
     Dosage: 0.0952 MG/KG/DAY (2 MG/KG EVERY 3 WEEKS)
     Route: 041
     Dates: start: 20140908, end: 20151112

REACTIONS (1)
  - Dermatomyositis [Fatal]

NARRATIVE: CASE EVENT DATE: 201508
